FAERS Safety Report 6970764 (Version 3)
Quarter: 2014Q3

REPORT INFORMATION
  Report Type: Spontaneous
  Country: FR (occurrence: FR)
  Receive Date: 20090416
  Receipt Date: 20140829
  Transmission Date: 20150326
  Serious: Yes (Death, Hospitalization, Other)
  Sender: FDA-Public Use
  Company Number: FR-PFIZER INC-2009194367

PATIENT
  Age: 60 Year
  Sex: Female

DRUGS (8)
  1. LAROXYL [Suspect]
     Active Substance: AMITRIPTYLINE
     Dosage: UNK
  2. PROZAC [Suspect]
     Active Substance: FLUOXETINE HYDROCHLORIDE
     Indication: DEPRESSION
     Dosage: UNK
  3. ART 50 [Suspect]
     Active Substance: DIACEREIN
     Dosage: UNK
  4. NEULEPTIL [Suspect]
     Active Substance: PERICIAZINE
     Dosage: UNK
  5. LEVOTHYROX [Suspect]
     Active Substance: LEVOTHYROXINE
  6. MEDIATOR [Suspect]
     Active Substance: BENFLUOREX
     Indication: DIABETES MELLITUS
     Dosage: 150 MG, 3X/DAY
     Dates: start: 1998, end: 2008
  7. TAHOR [Suspect]
     Active Substance: ATORVASTATIN CALCIUM
     Dosage: UNK
  8. NOCTRAN 10 [Suspect]
     Active Substance: ACEPROMAZINE\ACEPROMETAZINE\CLORAZEPATE DIPOTASSIUM
     Dosage: UNK

REACTIONS (7)
  - Pleural effusion [Recovered/Resolved with Sequelae]
  - Ascites [Unknown]
  - Hepatojugular reflux [Unknown]
  - Mitral valve incompetence [Recovered/Resolved with Sequelae]
  - Mitral valve disease [Recovered/Resolved with Sequelae]
  - Dyspnoea exertional [Unknown]
  - Cardiac arrest [Fatal]

NARRATIVE: CASE EVENT DATE: 200803
